FAERS Safety Report 8256808-8 (Version None)
Quarter: 2012Q2

REPORT INFORMATION
  Report Type: 
  Country: None (occurrence: None)
  Receive Date: 20120403
  Receipt Date: 20120329
  Transmission Date: 20120825
  Serious: Yes (Hospitalization)
  Sender: FDA-Public Use
  Company Number: PHHY2011JP103861

PATIENT
  Sex: Male
  Weight: 68 kg

DRUGS (10)
  1. SEREVENT [Concomitant]
     Dosage: 1 DF, UNK
  2. FLUTICASONE PROPIONATE [Concomitant]
     Dosage: 1 DF, UNK
  3. MAGNESIUM SULFATE [Concomitant]
     Dosage: 990 MG, UNK
  4. LEVOTHYROXINE SODIUM [Concomitant]
     Dosage: 25 UG, UNK
     Route: 048
     Dates: start: 20100122
  5. OLOPATADINE HCL [Concomitant]
     Dosage: 10 MG, UNK
     Route: 048
     Dates: start: 20081111
  6. RHEUMATREX [Concomitant]
     Route: 048
     Dates: start: 20100216
  7. ALOSENN [Concomitant]
     Dosage: 0.5 G, UNK
     Route: 048
     Dates: start: 20110714
  8. AFINITOR [Suspect]
     Indication: METASTATIC RENAL CELL CARCINOMA
     Dosage: 10 MG DAILY
     Route: 048
     Dates: start: 20110225, end: 20110414
  9. CLOBETASOL PROPIONATE [Concomitant]
     Dates: start: 20090401
  10. AFINITOR [Suspect]
     Dosage: 5 MG DAILY
     Route: 048
     Dates: start: 20110526, end: 20110810

REACTIONS (1)
  - HEAT ILLNESS [None]
